FAERS Safety Report 6563851-3 (Version None)
Quarter: 2010Q1

REPORT INFORMATION
  Report Type: 
  Country: None (occurrence: None)
  Receive Date: 20100130
  Receipt Date: 20091228
  Transmission Date: 20100710
  Serious: No
  Sender: FDA-Public Use
  Company Number: US-ABBOTT-09P-163-0617000-00

PATIENT
  Sex: Female
  Weight: 96.702 kg

DRUGS (8)
  1. HUMIRA [Suspect]
     Indication: CROHN'S DISEASE
     Dates: start: 20090801
  2. HUMIRA [Suspect]
     Indication: RHEUMATOID ARTHRITIS
  3. LIALDA [Concomitant]
     Indication: CROHN'S DISEASE
  4. PREDNISONE [Concomitant]
     Indication: CROHN'S DISEASE
  5. OMEPRAZOLE [Concomitant]
     Indication: GASTROOESOPHAGEAL REFLUX DISEASE
  6. AZITHIOPRINE [Concomitant]
     Indication: CROHN'S DISEASE
  7. TOPAMAX [Concomitant]
     Indication: MIGRAINE
  8. MICRONOR [Concomitant]
     Indication: CONTRACEPTION

REACTIONS (1)
  - INJECTION SITE HAEMATOMA [None]
